FAERS Safety Report 4599624-0 (Version None)
Quarter: 2005Q1

REPORT INFORMATION
  Report Type: 
  Country: None (occurrence: None)
  Receive Date: 20050303
  Receipt Date: 20050210
  Transmission Date: 20050727
  Serious: Yes (Hospitalization, Other)
  Sender: FDA-Public Use
  Company Number: US_0502112295

PATIENT
  Age: 14 Year
  Sex: Male
  Weight: 64 kg

DRUGS (7)
  1. STRATTERA [Suspect]
     Indication: ATTENTION DEFICIT/HYPERACTIVITY DISORDER
     Dosage: 75 MG DAY
     Dates: start: 20040107, end: 20050105
  2. TRILEPTAL [Concomitant]
  3. ADDERALL 10 [Concomitant]
  4. TOPAMAX [Concomitant]
  5. VALIUM [Concomitant]
  6. TENEX [Concomitant]
  7. TRAZODONE HCL [Concomitant]

REACTIONS (11)
  - AFFECTIVE DISORDER [None]
  - ANURIA [None]
  - CONDITION AGGRAVATED [None]
  - CONSTIPATION [None]
  - CONVULSION [None]
  - COORDINATION ABNORMAL [None]
  - DYSURIA [None]
  - IMPULSIVE BEHAVIOUR [None]
  - LETHARGY [None]
  - TREMOR [None]
  - URINARY HESITATION [None]
